FAERS Safety Report 25945367 (Version 2)
Quarter: 2025Q4

REPORT INFORMATION
  Report Type: Spontaneous
  Country: JP (occurrence: JP)
  Receive Date: 20251021
  Receipt Date: 20251023
  Transmission Date: 20260118
  Serious: Yes (Death)
  Sender: MITSUBISHI TANABE PHARMA
  Company Number: JP-MTPC-MTPC2025-0016537

PATIENT
  Age: 89 Year
  Sex: Female

DRUGS (2)
  1. EDARAVONE [Suspect]
     Active Substance: EDARAVONE
     Route: 048
  2. EDARAVONE [Suspect]
     Active Substance: EDARAVONE
     Route: 048

REACTIONS (1)
  - Dysphagia [Fatal]
